FAERS Safety Report 7470038-9 (Version None)
Quarter: 2011Q2

REPORT INFORMATION
  Report Type: 
  Country: None (occurrence: None)
  Receive Date: 20110510
  Receipt Date: 20110505
  Transmission Date: 20111010
  Serious: Yes (Other)
  Sender: FDA-Public Use
  Company Number: US-PFIZER INC-2011097545

PATIENT
  Age: 69 Year
  Sex: Male

DRUGS (6)
  1. LYRICA [Suspect]
     Indication: NEUROPATHY PERIPHERAL
     Dosage: 50 MG, UNK
     Route: 048
  2. FENTANYL [Concomitant]
     Dosage: UNK
  3. CYMBALTA [Concomitant]
     Dosage: UNK
  4. CLONAZEPAM [Concomitant]
     Dosage: UNK
  5. TRAZODONE [Concomitant]
     Dosage: UNK
  6. PALIPERIDONE [Concomitant]
     Dosage: UNK

REACTIONS (3)
  - CONFUSIONAL STATE [None]
  - DELIRIUM [None]
  - FALL [None]
